FAERS Safety Report 17140364 (Version 2)
Quarter: 2019Q4

REPORT INFORMATION
  Report Type: Spontaneous
  Country: GB (occurrence: GB)
  Receive Date: 20191211
  Receipt Date: 20191219
  Transmission Date: 20200122
  Serious: Yes (Hospitalization)
  Sender: FDA-Public Use
  Company Number: GB-STRIDES ARCOLAB LIMITED-2019SP012522

PATIENT
  Age: 18 Year
  Sex: Female

DRUGS (2)
  1. METRONIDAZOLE. [Suspect]
     Active Substance: METRONIDAZOLE
     Indication: PELVIC INFLAMMATORY DISEASE
     Dosage: 400 MILLIGRAM, TID
     Route: 065
  2. OFLOXACIN. [Interacting]
     Active Substance: OFLOXACIN
     Indication: PELVIC INFLAMMATORY DISEASE
     Dosage: 400 MILLIGRAM, BID
     Route: 065

REACTIONS (18)
  - Paranoia [Recovered/Resolved]
  - Depressed mood [Recovered/Resolved]
  - Immobile [Recovered/Resolved]
  - Agitation [Recovered/Resolved]
  - Stupor [Recovered/Resolved]
  - Anxiety [Recovered/Resolved]
  - Hallucination, auditory [Recovered/Resolved]
  - Delusion of reference [Recovered/Resolved]
  - Persecutory delusion [Recovered/Resolved]
  - Fear [Recovered/Resolved]
  - Tension [Recovered/Resolved]
  - Drug interaction [Unknown]
  - Idiosyncratic drug reaction [Recovered/Resolved]
  - Mutism [Recovered/Resolved]
  - Hypokinesia [Recovered/Resolved]
  - Psychotic disorder due to a general medical condition [Recovered/Resolved]
  - Feeling guilty [Recovered/Resolved]
  - Confusional state [Recovered/Resolved]
